FAERS Safety Report 26054949 (Version 1)
Quarter: 2025Q4

REPORT INFORMATION
  Report Type: Spontaneous
  Country: EU (occurrence: EU)
  Receive Date: 20251117
  Receipt Date: 20251117
  Transmission Date: 20260117
  Serious: Yes (Other)
  Sender: ELI LILLY AND COMPANY
  Company Number: None

PATIENT
  Age: 66 Year
  Sex: Female
  Weight: 72 kg

DRUGS (4)
  1. ABEMACICLIB [Suspect]
     Active Substance: ABEMACICLIB
     Indication: Invasive lobular breast carcinoma
     Dosage: 300 MG, UNKNOWN
     Route: 048
     Dates: start: 20240304, end: 20240619
  2. ABEMACICLIB [Suspect]
     Active Substance: ABEMACICLIB
     Dosage: 200 MG, UNKNOWN
     Route: 048
     Dates: start: 20240624, end: 20240708
  3. ABEMACICLIB [Suspect]
     Active Substance: ABEMACICLIB
     Dosage: 100 MG, UNKNOWN
     Route: 048
     Dates: start: 20240722
  4. LETROZOLE [Concomitant]
     Active Substance: LETROZOLE
     Indication: Invasive lobular breast carcinoma
     Dosage: 2.5 MG, UNKNOWN
     Route: 065
     Dates: start: 20240304

REACTIONS (14)
  - Symptom recurrence [Recovered/Resolved]
  - Neutropenia [Recovered/Resolved]
  - Bone pain [Recovered/Resolved]
  - Myalgia [Recovered/Resolved]
  - Oedema [Recovered/Resolved]
  - Palpitations [Recovered/Resolved]
  - Nocturia [Recovered/Resolved]
  - Nausea [Recovered/Resolved]
  - Nausea [Recovered/Resolved]
  - Vomiting [Recovered/Resolved]
  - Dyspepsia [Recovered/Resolved]
  - Fatigue [Recovered/Resolved]
  - Diarrhoea [Recovered/Resolved]
  - Pruritus [Recovered/Resolved]

NARRATIVE: CASE EVENT DATE: 20240619
